FAERS Safety Report 18853557 (Version 2)
Quarter: 2021Q1

REPORT INFORMATION
  Report Type: Spontaneous
  Country: BR (occurrence: BR)
  Receive Date: 20210205
  Receipt Date: 20210317
  Transmission Date: 20210420
  Serious: Yes (Other)
  Sender: FDA-Public Use
  Company Number: BR-ABBVIE-21K-020-3762076-00

PATIENT
  Sex: Female
  Weight: 89.9 kg

DRUGS (4)
  1. SELOZOK [Concomitant]
     Active Substance: METOPROLOL SUCCINATE
     Indication: PRODUCT USED FOR UNKNOWN INDICATION
     Route: 065
  2. IMBRUVICA [Suspect]
     Active Substance: IBRUTINIB
     Indication: CHRONIC LYMPHOCYTIC LEUKAEMIA
     Route: 048
     Dates: start: 201809
  3. PURAN [Concomitant]
     Active Substance: LEVOTHYROXINE SODIUM
     Indication: PRODUCT USED FOR UNKNOWN INDICATION
     Route: 065
  4. ARADOIS [Concomitant]
     Active Substance: LOSARTAN POTASSIUM
     Indication: PRODUCT USED FOR UNKNOWN INDICATION
     Route: 065

REACTIONS (8)
  - Suspected counterfeit product [Not Recovered/Not Resolved]
  - Broncholithiasis [Not Recovered/Not Resolved]
  - Wound [Unknown]
  - Iron overload [Unknown]
  - Spinal disorder [Not Recovered/Not Resolved]
  - Pruritus [Unknown]
  - Asthma [Not Recovered/Not Resolved]
  - Weight increased [Unknown]
